FAERS Safety Report 4350955-9 (Version None)
Quarter: 2004Q2

REPORT INFORMATION
  Report Type: 
  Country: None (occurrence: None)
  Receive Date: 20040428
  Receipt Date: 20040417
  Transmission Date: 20050107
  Serious: Yes (Disabling)
  Sender: FDA-Public Use
  Company Number: 2003113030

PATIENT
  Age: 75 Year
  Sex: Female
  Weight: 68.0396 kg

DRUGS (8)
  1. LIPITOR [Suspect]
     Indication: HYPERCHOLESTEROLAEMIA
     Dosage: 20 TO 40 MG (DAILY), ORAL
     Route: 048
     Dates: start: 20020318, end: 20030807
  2. PAROXETINE HCL [Concomitant]
  3. OXYGEN [Concomitant]
  4. SERETIDE MITE (FLUTICASONE PROPIONATE, SALMETEROL) [Concomitant]
  5. RISEDRONATE SODIUM [Concomitant]
  6. LEVOSALBUTAMOL [Concomitant]
  7. IPRATROPIUM BROMIDE [Concomitant]
  8. CENTRUM (MINERALS NOS, VITAMINS NOS) [Concomitant]

REACTIONS (13)
  - ASTHENIA [None]
  - BALANCE DISORDER [None]
  - BLOOD PRESSURE INCREASED [None]
  - HYPOAESTHESIA [None]
  - MONONEUROPATHY MULTIPLEX [None]
  - MUSCLE ATROPHY [None]
  - MUSCLE CRAMP [None]
  - MYALGIA [None]
  - NASOPHARYNGITIS [None]
  - NERVE INJURY [None]
  - NEUROPATHY [None]
  - PAIN [None]
  - PNEUMONIA [None]
